FAERS Safety Report 21282766 (Version 1)
Quarter: 2022Q3

REPORT INFORMATION
  Report Type: Spontaneous
  Country: ES (occurrence: ES)
  Receive Date: 20220901
  Receipt Date: 20220901
  Transmission Date: 20221027
  Serious: Yes (Life-Threatening)
  Sender: FDA-Public Use
  Company Number: None

PATIENT
  Age: 72 Year
  Sex: Female

DRUGS (7)
  1. TAFINLAR [Suspect]
     Active Substance: DABRAFENIB MESYLATE
     Indication: Malignant melanoma
     Dosage: 2 DOSAGE FORM, (C/12 H) (28 CAPSULES)
     Route: 048
     Dates: start: 20220412
  2. TRAMETINIB [Suspect]
     Active Substance: TRAMETINIB
     Indication: Malignant melanoma
     Dosage: 1 DOSAGE FORM, (C/24 H)
     Route: 048
     Dates: start: 20220412
  3. MEGESTROL ACETATE [Concomitant]
     Active Substance: MEGESTROL ACETATE
     Indication: Metastases to liver
     Dosage: 320 MG, (C/24 H) (30 SACHETS)
     Route: 048
     Dates: start: 20220324
  4. FAMOTIDINA CINFA [Concomitant]
     Indication: Product used for unknown indication
     Dosage: 20 MG, CE (28 TABLETS)
     Route: 048
     Dates: start: 20220420
  5. ESCITALOPRAM [Concomitant]
     Active Substance: ESCITALOPRAM OXALATE
     Indication: Product used for unknown indication
     Dosage: 10 MG, DE (56 TABLETS)
     Route: 048
     Dates: start: 20211029
  6. ZOLPIDEM ARISTO [Concomitant]
     Indication: Product used for unknown indication
     Dosage: 5 MG, C/24 H NOC (30 TABLETS)
     Route: 048
     Dates: start: 20211028
  7. DEXAMETHASONE [Concomitant]
     Active Substance: DEXAMETHASONE
     Indication: Metastases to liver
     Dosage: 4 MG, DECO (30 TABLETS)
     Route: 048
     Dates: start: 20220323

REACTIONS (2)
  - Cardiac failure congestive [Recovering/Resolving]
  - Dyspnoea [Recovering/Resolving]

NARRATIVE: CASE EVENT DATE: 20220704
